FAERS Safety Report 5703086-7 (Version None)
Quarter: 2008Q2

REPORT INFORMATION
  Report Type: 
  Country: None (occurrence: None)
  Receive Date: 20080411
  Receipt Date: 20080331
  Transmission Date: 20081010
  Serious: Yes (Hospitalization, Other)
  Sender: FDA-Public Use
  Company Number: JP-PFIZER INC-2005136524

PATIENT
  Sex: Male
  Weight: 55 kg

DRUGS (42)
  1. CAMPTO [Suspect]
     Indication: GASTRIC CANCER
     Dosage: DAILY DOSE:126MG
     Route: 042
     Dates: start: 20050715, end: 20050729
  2. CAMPTO [Suspect]
     Dosage: DAILY DOSE:93MG
     Route: 042
     Dates: start: 20050824, end: 20050907
  3. CAMPTO [Suspect]
     Dosage: DAILY DOSE:61.6MG
     Route: 042
     Dates: start: 20051014, end: 20051014
  4. TEGAFUR/GIMERACIL/OTERACIL POTASSIUM [Suspect]
     Indication: GASTRIC CANCER
     Route: 048
     Dates: start: 20050715, end: 20050805
  5. TEGAFUR/GIMERACIL/OTERACIL POTASSIUM [Suspect]
     Route: 048
     Dates: start: 20050824, end: 20050914
  6. TEGAFUR/GIMERACIL/OTERACIL POTASSIUM [Suspect]
     Route: 048
     Dates: start: 20051014, end: 20051028
  7. KYTRIL [Concomitant]
     Indication: PROPHYLAXIS OF NAUSEA AND VOMITING
     Route: 042
     Dates: start: 20050715, end: 20051014
  8. KYTRIL [Concomitant]
     Route: 048
     Dates: start: 20050721, end: 20051015
  9. DECADRON [Concomitant]
     Indication: PROPHYLAXIS
     Route: 042
     Dates: start: 20050715, end: 20050729
  10. SOLITA-T 3G [Concomitant]
     Indication: FLUID REPLACEMENT
     Route: 042
     Dates: start: 20050715, end: 20051029
  11. PRIMPERAN INJ [Concomitant]
     Indication: NAUSEA
     Route: 048
     Dates: start: 20050721, end: 20051028
  12. PRIMPERAN INJ [Concomitant]
     Route: 042
     Dates: start: 20050810, end: 20051106
  13. RESTAMIN [Concomitant]
     Indication: RASH
     Dates: start: 20050727, end: 20050816
  14. RINDERON-VG [Concomitant]
     Indication: RASH
     Dates: start: 20050727, end: 20050816
  15. MAGNESIUM OXIDE [Concomitant]
     Indication: CONSTIPATION
     Route: 048
     Dates: start: 20050729, end: 20050914
  16. ALBUMIN TANNATE [Concomitant]
     Indication: DIARRHOEA
     Route: 048
     Dates: start: 20050810, end: 20050816
  17. ADSORBIN [Concomitant]
     Indication: DIARRHOEA
     Route: 048
     Dates: start: 20050810, end: 20050816
  18. LOPEMIN [Concomitant]
     Indication: DIARRHOEA
     Route: 048
     Dates: start: 20050810, end: 20051026
  19. ASPARA K [Concomitant]
     Indication: DIARRHOEA
     Route: 048
     Dates: start: 20050810, end: 20050816
  20. ASPARA K [Concomitant]
     Route: 042
     Dates: start: 20050810, end: 20050816
  21. SOLITA-T3 INJECTION [Concomitant]
     Indication: FLUID REPLACEMENT
     Route: 042
     Dates: start: 20050810, end: 20051004
  22. GASCON [Concomitant]
     Indication: ABDOMINAL DISTENSION
     Route: 048
     Dates: start: 20050815, end: 20051028
  23. RIVOTRIL [Concomitant]
     Indication: HICCUPS
     Route: 048
     Dates: start: 20050815, end: 20051023
  24. BIOFERMIN R [Concomitant]
     Indication: CONSTIPATION
     Route: 048
     Dates: start: 20050816, end: 20051028
  25. PANTOSIN [Concomitant]
     Indication: ABDOMINAL DISTENSION
     Route: 048
     Dates: start: 20050908, end: 20051028
  26. PENTAZOCINE LACTATE [Concomitant]
     Indication: PAIN
     Route: 048
     Dates: start: 20050912, end: 20050914
  27. PENTAZOCINE LACTATE [Concomitant]
     Route: 030
     Dates: start: 20050916, end: 20051102
  28. PANSPORIN [Concomitant]
     Dosage: TEXT:1DF
     Route: 042
     Dates: start: 20050914, end: 20050917
  29. VOLTAREN [Concomitant]
     Indication: ANTIPYRESIS
     Route: 054
     Dates: start: 20050914, end: 20051008
  30. ATARAX [Concomitant]
     Indication: PAIN
     Route: 030
     Dates: start: 20050916, end: 20051102
  31. FAMOTIDINE [Concomitant]
     Indication: ABDOMINAL PAIN
     Route: 042
     Dates: start: 20050924, end: 20051001
  32. AMINOFLUID [Concomitant]
     Indication: FLUID REPLACEMENT
     Route: 042
     Dates: start: 20050924, end: 20051001
  33. GLUCAGON [Concomitant]
     Indication: ENDOSCOPY
     Route: 042
     Dates: start: 20050924, end: 20050924
  34. ALBUMIN (HUMAN) [Concomitant]
     Indication: HYPOALBUMINAEMIA
     Route: 042
     Dates: start: 20051001, end: 20051003
  35. LASIX [Concomitant]
     Indication: ASCITES
     Route: 042
     Dates: start: 20051001, end: 20051003
  36. UREPEARL [Concomitant]
     Indication: PRURITUS
  37. RED BLOOD CELLS [Concomitant]
     Dosage: TEXT:1DF
     Route: 042
     Dates: start: 20051028, end: 20051028
  38. BUSCOPAN [Concomitant]
     Route: 042
     Dates: start: 20051102, end: 20051102
  39. MORPHINE HCL ELIXIR [Concomitant]
     Route: 042
     Dates: start: 20051102, end: 20051105
  40. MEROPEN [Concomitant]
     Route: 042
     Dates: start: 20051103, end: 20051107
  41. BACLOFEN [Concomitant]
     Route: 042
     Dates: start: 20051103, end: 20051103
  42. FENTANYL [Concomitant]
     Dates: start: 20051104

REACTIONS (4)
  - HAEMOGLOBIN DECREASED [None]
  - HYPERKALAEMIA [None]
  - ILEUS PARALYTIC [None]
  - NEUTROPENIA [None]
